FAERS Safety Report 13884033 (Version 2)
Quarter: 2017Q4

REPORT INFORMATION
  Report Type: Spontaneous
  Country: FR (occurrence: FR)
  Receive Date: 20170820
  Receipt Date: 20171109
  Transmission Date: 20180320
  Serious: Yes (Death, Other)
  Sender: FDA-Public Use
  Company Number: FR-MYLANLABS-2017M1050562

PATIENT
  Age: 89 Year
  Sex: Female

DRUGS (1)
  1. ZAMUDOL LP 100 MG, G?LULE ? LIB?RATION PROLONG?E [Suspect]
     Active Substance: TRAMADOL HYDROCHLORIDE
     Indication: PAIN
     Dosage: 100 MG, BID
     Route: 048
     Dates: start: 201412, end: 2015

REACTIONS (6)
  - Vertigo [Recovered/Resolved]
  - Bedridden [Not Recovered/Not Resolved]
  - Urinary retention [Recovered/Resolved]
  - Somnolence [Not Recovered/Not Resolved]
  - Nightmare [Recovered/Resolved]
  - Hallucination, visual [Recovered/Resolved]

NARRATIVE: CASE EVENT DATE: 201412
